FAERS Safety Report 19454694 (Version 4)
Quarter: 2021Q4

REPORT INFORMATION
  Report Type: Spontaneous
  Country: NL (occurrence: NL)
  Receive Date: 20210623
  Receipt Date: 20211027
  Transmission Date: 20220303
  Serious: Yes (Other)
  Sender: FDA-Public Use
  Company Number: NL-TEVA-2020-NL-1865076

PATIENT
  Age: 71 Year
  Sex: Female

DRUGS (11)
  1. DEXAMETHASONE [Suspect]
     Active Substance: DEXAMETHASONE
     Indication: Hyperviscosity syndrome
     Dosage: UNK
  2. DEXAMETHASONE [Suspect]
     Active Substance: DEXAMETHASONE
     Indication: Plasma cell myeloma
     Dosage: 40 MILLIGRAM, QW (40 MILLIGRAM, 1/WEEK)
     Route: 065
  3. THALIDOMIDE [Suspect]
     Active Substance: THALIDOMIDE
     Indication: Hyperviscosity syndrome
     Dosage: UNK
  4. THALIDOMIDE [Suspect]
     Active Substance: THALIDOMIDE
     Indication: Plasma cell myeloma
     Dosage: 100 MILLIGRAM, 100 MILLIGRAM ((ON DAYS1-21 OF 28 DAY CYCLE))
     Route: 065
  5. IXAZOMIB [Suspect]
     Active Substance: IXAZOMIB
     Indication: Plasma cell myeloma
     Dosage: 9 MONTHLY CYCLES OF IXAZOMIB (ON DAYS 1, 8,15 OF 28-DAY CYCLE)
     Route: 048
  6. IXAZOMIB [Suspect]
     Active Substance: IXAZOMIB
     Indication: Hyperviscosity syndrome
     Dosage: UNK
  7. SODIUM CHLORIDE [Suspect]
     Active Substance: SODIUM CHLORIDE
     Indication: Hyperviscosity syndrome
     Dosage: UNK
  8. SODIUM CHLORIDE [Suspect]
     Active Substance: SODIUM CHLORIDE
     Indication: Plasma cell myeloma
     Dosage: 5% ALBUMIN, 0.9% SALINE WITH A PRESCRIBED VOLUME OF 50 TO 60 ML/KG BODY WEIGHT
     Route: 065
  9. ALBUMIN HUMAN [Suspect]
     Active Substance: ALBUMIN HUMAN
     Indication: Plasma cell myeloma
     Dosage: 5% ALBUMIN, 0.9% SALINE WITH A PRESCRIBED VOLUME OF 50 TO 60 ML/KG BODY WEIGHT
     Route: 065
  10. ALBUMIN HUMAN [Suspect]
     Active Substance: ALBUMIN HUMAN
     Indication: Hyperviscosity syndrome
     Dosage: UNK
  11. ALBUMIN HUMAN [Suspect]
     Active Substance: ALBUMIN HUMAN
     Indication: Plasma cell myeloma

REACTIONS (3)
  - Polyneuropathy [Unknown]
  - Nausea [Unknown]
  - Off label use [Unknown]
